FAERS Safety Report 21536783 (Version 1)
Quarter: 2022Q4

REPORT INFORMATION
  Report Type: Spontaneous
  Country: US (occurrence: US)
  Receive Date: 20221101
  Receipt Date: 20221101
  Transmission Date: 20230112
  Serious: No
  Sender: FDA-Public Use
  Company Number: US-PERRIGO-21US030449

PATIENT
  Sex: Female

DRUGS (2)
  1. UNISOM SLEEPTABS [Suspect]
     Active Substance: DOXYLAMINE SUCCINATE
     Indication: Insomnia
     Dosage: 25 MG, QHS
     Route: 048
     Dates: start: 202110
  2. UNISOM SLEEPTABS [Suspect]
     Active Substance: DOXYLAMINE SUCCINATE
     Indication: Morning sickness

REACTIONS (2)
  - Drug effective for unapproved indication [Unknown]
  - Maternal exposure during pregnancy [Unknown]

NARRATIVE: CASE EVENT DATE: 20211001
